FAERS Safety Report 14374247 (Version 1)
Quarter: 2018Q1

REPORT INFORMATION
  Report Type: Spontaneous
  Country: US (occurrence: US)
  Receive Date: 20180111
  Receipt Date: 20180111
  Transmission Date: 20180509
  Serious: No
  Sender: FDA-Public Use
  Company Number: US-CELGENEUS-USA-20180102669

PATIENT
  Sex: Male

DRUGS (1)
  1. OTEZLA [Suspect]
     Active Substance: APREMILAST
     Indication: PSORIASIS
     Route: 048
     Dates: end: 20180105

REACTIONS (4)
  - Confusional state [Recovering/Resolving]
  - Pain [Not Recovered/Not Resolved]
  - Cognitive disorder [Recovering/Resolving]
  - Abdominal discomfort [Not Recovered/Not Resolved]
